FAERS Safety Report 20166851 (Version 1)
Quarter: 2021Q4

REPORT INFORMATION
  Report Type: Spontaneous
  Country: FR (occurrence: FR)
  Receive Date: 20211209
  Receipt Date: 20211209
  Transmission Date: 20220303
  Serious: Yes (Other)
  Sender: FDA-Public Use
  Company Number: FR-MYLANLABS-2021M1090664

PATIENT
  Age: 15 Month
  Sex: Male

DRUGS (1)
  1. DESLORATADINE [Suspect]
     Active Substance: DESLORATADINE
     Indication: Urticaria
     Dosage: UNK

REACTIONS (2)
  - Haematotympanum [Unknown]
  - Rash [Unknown]
